FAERS Safety Report 11707022 (Version 2)
Quarter: 2015Q4

REPORT INFORMATION
  Report Type: Report from Study
  Country: US (occurrence: US)
  Receive Date: 20151106
  Receipt Date: 20151118
  Transmission Date: 20160304
  Serious: Yes (Death, Hospitalization)
  Sender: FDA-Public Use
  Company Number: US-ACTELION-A-NJ2015-125748

PATIENT
  Age: 85 Year
  Sex: Male

DRUGS (2)
  1. TYVASO [Concomitant]
     Active Substance: TREPROSTINIL
  2. MACITENTAN [Suspect]
     Active Substance: MACITENTAN
     Indication: PULMONARY ARTERIAL HYPERTENSION
     Dosage: 10 MG, QD
     Route: 048
     Dates: start: 20140915, end: 20151102

REACTIONS (7)
  - Death [Fatal]
  - Hypotension [Unknown]
  - Thrombosis [Unknown]
  - Pneumonia [Unknown]
  - Oxygen saturation decreased [Unknown]
  - Localised infection [Unknown]
  - Renal failure [Unknown]

NARRATIVE: CASE EVENT DATE: 20151102
